FAERS Safety Report 5247350-7 (Version None)
Quarter: 2007Q1

REPORT INFORMATION
  Report Type: 
  Country: None (occurrence: None)
  Receive Date: 20070227
  Receipt Date: 20070219
  Transmission Date: 20070707
  Serious: Yes (Hospitalization)
  Sender: FDA-Public Use
  Company Number: JP-JNJFOC-20070202256

PATIENT
  Sex: Female
  Weight: 51 kg

DRUGS (19)
  1. INFLIXIMAB [Suspect]
     Route: 042
  2. INFLIXIMAB [Suspect]
     Route: 042
  3. INFLIXIMAB [Suspect]
     Route: 042
  4. INFLIXIMAB [Suspect]
     Indication: PUSTULAR PSORIASIS
     Route: 042
  5. PREDNISOLONE [Concomitant]
     Route: 048
  6. ATARAX [Concomitant]
     Indication: PUSTULAR PSORIASIS
     Route: 048
  7. FOSAMAX [Concomitant]
     Indication: OSTEOPOROSIS
     Route: 048
  8. PREDONINE [Concomitant]
     Indication: PUSTULAR PSORIASIS
     Route: 048
  9. LOCHOL [Concomitant]
     Indication: HYPERTENSION
     Route: 048
  10. NIPOLAZIN [Concomitant]
     Indication: PUSTULAR PSORIASIS
     Route: 048
  11. CONSTAN [Concomitant]
     Indication: INSOMNIA
     Dosage: START DATE BEFORE 04-OCT-06
     Route: 048
  12. SELBEX [Concomitant]
     Indication: GASTROINTESTINAL DISORDER
     Route: 048
  13. AMLODIPINE [Concomitant]
     Indication: HYPERTENSION
     Dosage: START DATE BEFORE 04-OCT-06
     Route: 048
  14. ALESION [Concomitant]
     Indication: PUSTULAR PSORIASIS
     Route: 048
  15. ACECOL [Concomitant]
     Indication: HYPERTENSION
     Route: 048
  16. LANSOPRAZOLE [Concomitant]
     Indication: GASTROINTESTINAL DISORDER
     Route: 048
  17. LENDORMIN D [Concomitant]
     Indication: INSOMNIA
     Route: 048
  18. NERISONA [Concomitant]
     Indication: PUSTULAR PSORIASIS
     Dosage: START DATE BEFORE 04-OCT-06, ADEQUATE DOSE
     Route: 061
  19. AZUNOL [Concomitant]
     Indication: PUSTULAR PSORIASIS
     Dosage: ADEQUATE DOSE
     Route: 061

REACTIONS (3)
  - BACK PAIN [None]
  - C-REACTIVE PROTEIN INCREASED [None]
  - HERPES ZOSTER [None]
